FAERS Safety Report 9717584 (Version 2)
Quarter: 2013Q4

REPORT INFORMATION
  Report Type: Spontaneous
  Country: FR (occurrence: FR)
  Receive Date: 20131127
  Receipt Date: 20131226
  Transmission Date: 20140711
  Serious: Yes (Other)
  Sender: FDA-Public Use
  Company Number: FR-UCBSA-103906

PATIENT
  Age: 52 Year
  Sex: Male
  Weight: 62 kg

DRUGS (4)
  1. CIMZIA [Suspect]
     Indication: RHEUMATOID ARTHRITIS
     Dosage: 200MG
     Route: 058
     Dates: start: 20111017, end: 20131015
  2. IMETH [Concomitant]
     Indication: RHEUMATOID ARTHRITIS
     Dosage: 15MG WEEKLY
     Route: 048
     Dates: start: 20130408
  3. SPECIAFOLDINE [Concomitant]
     Indication: RHEUMATOID ARTHRITIS
     Route: 048
     Dates: start: 20100201
  4. CO-KENZEN [Concomitant]
     Dosage: ONCE DAILY - UNSPECIFIED DOSE
     Route: 048
     Dates: start: 20110715

REACTIONS (1)
  - Herpes zoster [Recovered/Resolved]
